FAERS Safety Report 9061559 (Version 1)
Quarter: 2013Q1

REPORT INFORMATION
  Report Type: Report from Study
  Country: FR (occurrence: FR)
  Receive Date: 20130204
  Receipt Date: 20130204
  Transmission Date: 20140127
  Serious: Yes (Hospitalization)
  Sender: FDA-Public Use
  Company Number: FR-MPIJNJ-2013-00584

PATIENT
  Sex: 0

DRUGS (9)
  1. VELCADE [Suspect]
     Indication: PLASMA CELL MYELOMA
     Dosage: 1.3 UNK, UNK
     Route: 065
     Dates: end: 201211
  2. DEXAMETHASONE [Suspect]
     Indication: PLASMA CELL MYELOMA
     Dosage: 20 MG, UNK
     Route: 048
     Dates: end: 201211
  3. KAYEXALATE [Concomitant]
  4. CRESTOR                            /01588601/ [Concomitant]
     Dosage: 20 MG, UNK
     Route: 048
  5. LASILIX                            /00032601/ [Concomitant]
     Dosage: 500 MG, UNK
     Route: 048
     Dates: start: 201207
  6. PREVISCAN                          /00261401/ [Concomitant]
     Dosage: UNK
     Dates: start: 201204
  7. INEXIUM /01479302/ [Concomitant]
     Dosage: 40 MG, UNK
     Route: 048
     Dates: start: 201207
  8. BACTRIM [Concomitant]
     Dosage: 400 MG, UNK
     Route: 048
  9. ZELITREX                           /01269701/ [Concomitant]
     Dosage: 100 MG, UNK
     Route: 048

REACTIONS (1)
  - Sigmoiditis [Recovered/Resolved]
